FAERS Safety Report 9529543 (Version 1)
Quarter: 2013Q2

REPORT INFORMATION
  Report Type: Spontaneous
  Country: US (occurrence: None)
  Receive Date: 20130402
  Receipt Date: 20130402
  Transmission Date: 20140414
  Serious: Yes (Other)
  Sender: FDA-Public Use
  Company Number: RB-49884-2013

PATIENT
  Age: 25 Year
  Sex: Male

DRUGS (1)
  1. SUBOXONE [Suspect]
     Dosage: 16 MG, SUBOXONE FILM SUBLINGUAL ?
     Route: 060
     Dates: start: 201210, end: 201301

REACTIONS (3)
  - Chest pain [None]
  - Blood pressure increased [None]
  - Underdose [None]
